FAERS Safety Report 18587901 (Version 1)
Quarter: 2020Q4

REPORT INFORMATION
  Report Type: Spontaneous
  Country: US (occurrence: US)
  Receive Date: 20201207
  Receipt Date: 20201207
  Transmission Date: 20210114
  Serious: Yes (Hospitalization)
  Sender: FDA-Public Use
  Company Number: US-TEVA-2020-US-1856293

PATIENT
  Age: 48 Year
  Sex: Male

DRUGS (3)
  1. CLOMIPHENE CITRATE. [Suspect]
     Active Substance: CLOMIPHENE CITRATE
     Indication: BLOOD TESTOSTERONE DECREASED
     Dosage: 100 MILLIGRAM DAILY;
     Route: 048
  2. AMOXICILLIN/CLAVULANIC-ACID [Suspect]
     Active Substance: AMOXICILLIN\CLAVULANIC ACID
     Indication: ABSCESS NECK
     Route: 048
  3. OLANZAPINE. [Concomitant]
     Active Substance: OLANZAPINE
     Indication: ANXIETY
     Dosage: 5 MILLIGRAM DAILY;
     Route: 048

REACTIONS (1)
  - Bipolar disorder [Unknown]
